FAERS Safety Report 22181932 (Version 1)
Quarter: 2023Q2

REPORT INFORMATION
  Report Type: Spontaneous
  Country: US (occurrence: US)
  Receive Date: 20230406
  Receipt Date: 20230406
  Transmission Date: 20230722
  Serious: Yes (Other)
  Sender: FDA-Public Use
  Company Number: US-PFIZER INC-PV202300062703

PATIENT
  Age: 59 Year
  Sex: Female

DRUGS (1)
  1. BOSULIF [Suspect]
     Active Substance: BOSUTINIB MONOHYDRATE
     Dosage: 400 MG

REACTIONS (3)
  - Neck surgery [Unknown]
  - Nervousness [Unknown]
  - Malaise [Unknown]
